FAERS Safety Report 20819274 (Version 2)
Quarter: 2022Q2

REPORT INFORMATION
  Report Type: Spontaneous
  Country: US (occurrence: US)
  Receive Date: 20220512
  Receipt Date: 20220526
  Transmission Date: 20220721
  Serious: Yes (Life-Threatening, Hospitalization)
  Sender: FDA-Public Use
  Company Number: US-TEVA-2022-US-2035035

PATIENT
  Age: 2 Week
  Sex: Female

DRUGS (3)
  1. DIAZOXIDE [Suspect]
     Active Substance: DIAZOXIDE
     Indication: Hyperinsulinaemic hypoglycaemia
     Dosage: 5 MG/KG DAILY;
     Route: 065
  2. DIAZOXIDE [Suspect]
     Active Substance: DIAZOXIDE
     Dosage: 8 MG/KG DAILY;
     Route: 065
  3. DEXTROSE [Concomitant]
     Active Substance: DEXTROSE
     Indication: Hyperinsulinaemic hypoglycaemia
     Route: 041

REACTIONS (4)
  - Pulmonary hypertension [Recovered/Resolved]
  - Pericardial effusion [Recovered/Resolved]
  - Respiratory failure [Recovered/Resolved]
  - Cardiac tamponade [Recovered/Resolved]
